FAERS Safety Report 21852345 (Version 1)
Quarter: 2023Q1

REPORT INFORMATION
  Report Type: Spontaneous
  Country: DE (occurrence: DE)
  Receive Date: 20230112
  Receipt Date: 20230112
  Transmission Date: 20230418
  Serious: Yes (Other)
  Sender: FDA-Public Use
  Company Number: DE-ROCHE-3252217

PATIENT
  Age: 62 Year
  Sex: Male

DRUGS (9)
  1. BENDAMUSTINE HYDROCHLORIDE [Suspect]
     Active Substance: BENDAMUSTINE HYDROCHLORIDE
     Indication: Waldenstrom^s macroglobulinaemia
     Dosage: FIRST LINE WITH RITUXIMAB, 6 CYCLES)
     Route: 042
     Dates: start: 2013
  2. BENDAMUSTINE HYDROCHLORIDE [Suspect]
     Active Substance: BENDAMUSTINE HYDROCHLORIDE
     Dosage: (SECOND LINE WITH OBINUTUZUMAB, 6 CYCLES)
     Route: 042
     Dates: start: 202102, end: 202106
  3. DOXORUBICIN HYDROCHLORIDE [Suspect]
     Active Substance: DOXORUBICIN HYDROCHLORIDE
     Indication: High-grade B-cell lymphoma
     Dosage: (THIRD LINE WITH OBINUTUZUMAB, 6 CYCLES)CHOP
     Route: 065
     Dates: start: 202206, end: 202210
  4. PREDNISONE [Suspect]
     Active Substance: PREDNISONE
     Indication: High-grade B-cell lymphoma
     Dosage: (THIRD LINE WITH OBINUTUZUMAB, 6 CYCLES)CHOP
     Route: 065
     Dates: start: 202206, end: 202210
  5. VINCRISTINE SULFATE [Suspect]
     Active Substance: VINCRISTINE SULFATE
     Indication: High-grade B-cell lymphoma
     Dosage: (THIRD LINE WITH OBINUTUZUMAB, 6 CYCLES)CHOP
     Route: 065
     Dates: start: 202206, end: 202210
  6. RITUXIMAB [Suspect]
     Active Substance: RITUXIMAB
     Indication: Waldenstrom^s macroglobulinaemia
     Dosage: (FIRST LINE WITH BENDAMUSTINE, 6 CYCLES)
     Route: 065
     Dates: start: 2013
  7. OBINUTUZUMAB [Suspect]
     Active Substance: OBINUTUZUMAB
     Indication: Waldenstrom^s macroglobulinaemia
     Dosage: (SECOND LINE WITH BENDAMUSTINE, 6 CYCLES)
     Route: 042
     Dates: start: 202102, end: 202106
  8. OBINUTUZUMAB [Suspect]
     Active Substance: OBINUTUZUMAB
     Indication: High-grade B-cell lymphoma
     Dosage: (THIRD LINE WITH CHOP, 6 CYCLES)
     Route: 042
     Dates: start: 202206, end: 202210
  9. CYCLOPHOSPHAMIDE [Suspect]
     Active Substance: CYCLOPHOSPHAMIDE
     Indication: High-grade B-cell lymphoma
     Dosage: (THIRD LINE WITH OBINUTUZUMAB, 6 CYCLES)CHOP
     Route: 065
     Dates: start: 202206, end: 202210

REACTIONS (2)
  - Malignant neoplasm progression [Unknown]
  - Waldenstrom^s macroglobulinaemia recurrent [Unknown]
